FAERS Safety Report 9127569 (Version 1)
Quarter: 2013Q1

REPORT INFORMATION
  Report Type: Spontaneous
  Country: US (occurrence: US)
  Receive Date: 20130228
  Receipt Date: 20130228
  Transmission Date: 20140127
  Serious: Yes (Other)
  Sender: FDA-Public Use
  Company Number: US-GLAXOSMITHKLINE-A0983973A

PATIENT
  Age: 30 Year
  Sex: Female

DRUGS (4)
  1. LAMOTRIGINE [Suspect]
     Indication: CONVULSION
     Route: 048
     Dates: start: 2008
  2. BIRTH CONTROL [Concomitant]
  3. FOLIC ACID [Concomitant]
  4. MELATONIN [Concomitant]

REACTIONS (1)
  - Convulsion [Recovered/Resolved]
